FAERS Safety Report 9157852 (Version 1)
Quarter: 2013Q1

REPORT INFORMATION
  Report Type: Spontaneous
  Country: FR (occurrence: None)
  Receive Date: 20130211
  Receipt Date: 20130211
  Transmission Date: 20140127
  Serious: Yes (Other)
  Sender: FDA-Public Use
  Company Number: 2013010144

PATIENT
  Age: 68 Year
  Sex: Female

DRUGS (1)
  1. D-PENICILLAMINE [Suspect]
     Indication: SYSTEMIC SCLEROSIS

REACTIONS (2)
  - Anti-neutrophil cytoplasmic antibody positive vasculitis [None]
  - Vasculitis [None]
